FAERS Safety Report 6156215-8 (Version None)
Quarter: 2009Q2

REPORT INFORMATION
  Report Type: 
  Country: None (occurrence: None)
  Receive Date: 20090415
  Receipt Date: 20090413
  Transmission Date: 20091009
  Serious: Yes (Other)
  Sender: FDA-Public Use
  Company Number: US-GENENTECH-281037

PATIENT
  Sex: Female

DRUGS (3)
  1. RAPTIVA [Suspect]
     Indication: DRUG USE FOR UNKNOWN INDICATION
     Dosage: UNK
     Dates: end: 20080101
  2. GENGRAF [Suspect]
     Indication: PSORIASIS
     Dosage: UNK
     Dates: start: 20080910, end: 20090303
  3. HUMIRA [Suspect]
     Indication: PSORIASIS
     Dosage: 40 MG, Q2W
     Route: 058
     Dates: start: 20090101, end: 20090303

REACTIONS (1)
  - PERIODONTITIS [None]
